FAERS Safety Report 8498010-0 (Version None)
Quarter: 2012Q3

REPORT INFORMATION
  Report Type: 
  Country: None (occurrence: None)
  Receive Date: 20120709
  Receipt Date: 20120619
  Transmission Date: 20120928
  Serious: No
  Sender: FDA-Public Use
  Company Number: US-AMGEN-USASP2012037961

PATIENT
  Age: 73 Year
  Sex: Female

DRUGS (1)
  1. ENBREL [Suspect]
     Indication: RHEUMATOID ARTHRITIS
     Dosage: 50 MG, QWK
     Dates: start: 20010601

REACTIONS (5)
  - FOOT DEFORMITY [None]
  - PAIN IN EXTREMITY [None]
  - HAEMATOCHEZIA [None]
  - POLYP [None]
  - BUNION [None]
